FAERS Safety Report 6496313-2 (Version None)
Quarter: 2009Q4

REPORT INFORMATION
  Report Type: 
  Country: None (occurrence: None)
  Receive Date: 20091209
  Receipt Date: 20091124
  Transmission Date: 20100525
  Serious: Yes (Death)
  Sender: FDA-Public Use
  Company Number: OSCN-NO-0903S-0171

PATIENT
  Age: 47 Year
  Sex: Male
  Weight: 55 kg

DRUGS (9)
  1. OMNISCAN [Suspect]
     Indication: DRUG USE FOR UNKNOWN INDICATION
     Dosage: 10 ML, SINGLE DOSE, I.V., SINGLE DOSE, I.V.
     Route: 042
     Dates: start: 20020430, end: 20020430
  2. OMNISCAN [Suspect]
     Indication: DRUG USE FOR UNKNOWN INDICATION
     Dosage: 10 ML, SINGLE DOSE, I.V., SINGLE DOSE, I.V.
     Route: 042
     Dates: start: 20030807, end: 20030807
  3. GANDOLINIUM (UNSPECIFIED) [Suspect]
     Indication: DRUG USE FOR UNKNOWN INDICATION
     Dosage: SINGLE DOSE, I.V.
     Route: 042
     Dates: start: 20020121, end: 20020121
  4. METOPROLOL SUCCINATE (SELO-ZOK) [Concomitant]
  5. LOSARTAN POTASSION (COZAAR) [Concomitant]
  6. FUROSEMIDE (DIURAL) [Concomitant]
  7. CALCIUM CARBONATE [Concomitant]
  8. ACETYLSALICYLIC ACID (MAGNYL) [Concomitant]
  9. INSULIN HUMAN (MIXTARD) [Concomitant]

REACTIONS (23)
  - ATELECTASIS [None]
  - BRONCHOPNEUMONIA [None]
  - CARDIOPULMONARY FAILURE [None]
  - DECREASED ACTIVITY [None]
  - FATIGUE [None]
  - GAIT DISTURBANCE [None]
  - HEPATITIS TOXIC [None]
  - HEPATOMEGALY [None]
  - HYDROTHORAX [None]
  - HYPOAESTHESIA [None]
  - HYPOKINESIA [None]
  - MULTI-ORGAN FAILURE [None]
  - MUSCULAR WEAKNESS [None]
  - MYOCARDIAL FIBROSIS [None]
  - NEPHROGENIC SYSTEMIC FIBROSIS [None]
  - OEDEMA PERIPHERAL [None]
  - OROPHARYNGEAL CANDIDIASIS [None]
  - PARAESTHESIA [None]
  - POOR PERIPHERAL CIRCULATION [None]
  - PRURITUS [None]
  - PULMONARY OEDEMA [None]
  - SKIN ULCER [None]
  - TESTICULAR ATROPHY [None]
